FAERS Safety Report 24434148 (Version 2)
Quarter: 2025Q2

REPORT INFORMATION
  Report Type: Report from Study
  Country: US (occurrence: US)
  Receive Date: 20241014
  Receipt Date: 20250625
  Transmission Date: 20250717
  Serious: No
  Sender: MERCK SHARP & DOHME LLC
  Company Number: None

PATIENT
  Sex: Female
  Weight: 54.885 kg

DRUGS (11)
  1. WINREVAIR [Suspect]
     Active Substance: SOTATERCEPT-CSRK
     Indication: Pulmonary arterial hypertension
     Dates: start: 2024
  2. WINREVAIR [Suspect]
     Active Substance: SOTATERCEPT-CSRK
  3. WINREVAIR [Suspect]
     Active Substance: SOTATERCEPT-CSRK
  4. WINREVAIR [Suspect]
     Active Substance: SOTATERCEPT-CSRK
  5. WINREVAIR [Suspect]
     Active Substance: SOTATERCEPT-CSRK
     Indication: Pulmonary arterial hypertension
     Route: 058
     Dates: start: 202407
  6. WINREVAIR [Suspect]
     Active Substance: SOTATERCEPT-CSRK
  7. WINREVAIR [Suspect]
     Active Substance: SOTATERCEPT-CSRK
  8. WINREVAIR [Suspect]
     Active Substance: SOTATERCEPT-CSRK
  9. REMODULIN [Suspect]
     Active Substance: TREPROSTINIL
     Indication: Pulmonary arterial hypertension
     Route: 042
     Dates: start: 202104
  10. OPSUMIT [Concomitant]
     Active Substance: MACITENTAN
  11. SODIUM CHLORIDE [Concomitant]
     Active Substance: SODIUM CHLORIDE

REACTIONS (2)
  - Rash [Unknown]
  - Adverse event [Unknown]

NARRATIVE: CASE EVENT DATE: 20240101
